FAERS Safety Report 9292239 (Version 1)
Quarter: 2012Q4

REPORT INFORMATION
  Report Type: Spontaneous
  Country: US (occurrence: None)
  Receive Date: 20121128
  Receipt Date: 20121128
  Transmission Date: 20130627
  Serious: Yes (Death, Life-Threatening, Other)
  Sender: FDA-Public Use
  Company Number: DKLU1083115

PATIENT
  Age: 6 Month
  Sex: Female
  Weight: 6.2 kg

DRUGS (23)
  1. SABRIL (FOR ORAL SOLUTION)(SABRIL)(VIGABATRIN)(500 MG, POWDER FOR ORAL SOLUTION) [Suspect]
     Indication: INFANTILE SPASMS
     Dosage: 2 in 1 D
     Route: 048
     Dates: start: 20120306
  2. SABRIL (FOR ORAL SOLUTION)(SABRIL)(VIGABATRIN)(500 MG, POWDER FOR ORAL SOLUTION) [Suspect]
     Indication: INFANTILE SPASMS
     Route: 048
     Dates: start: 20120309
  3. SABRIL (FOR ORAL SOLUTION)(SABRIL)(VIGABATRIN)(500 MG, POWDER FOR ORAL SOLUTION) [Suspect]
     Indication: INFANTILE SPASMS
     Route: 048
     Dates: start: 20120312
  4. SABRIL (FOR ORAL SOLUTION)(SABRIL)(VIGABATRIN)(500 MG, POWDER FOR ORAL SOLUTION) [Suspect]
     Indication: INFANTILE SPASMS
     Route: 048
     Dates: start: 20120315
  5. SABRIL (FOR ORAL SOLUTION)(SABRIL)(VIGABATRIN)(500 MG, POWDER FOR ORAL SOLUTION) [Suspect]
     Indication: INFANTILE SPASMS
     Route: 048
     Dates: start: 20120322
  6. SABRIL (FOR ORAL SOLUTION)(SABRIL)(VIGABATRIN)(500 MG, POWDER FOR ORAL SOLUTION) [Suspect]
     Indication: INFANTILE SPASMS
     Route: 048
     Dates: start: 20120330
  7. SABRIL (FOR ORAL SOLUTION)(SABRIL)(VIGABATRIN)(500 MG, POWDER FOR ORAL SOLUTION) [Suspect]
     Indication: INFANTILE SPASMS
     Route: 048
     Dates: start: 20120410
  8. SABRIL (FOR ORAL SOLUTION)(SABRIL)(VIGABATRIN)(500 MG, POWDER FOR ORAL SOLUTION) [Suspect]
     Indication: INFANTILE SPASMS
  9. TOPAMAX (TOPIRAMATE)(6 MG/ML) [Concomitant]
  10. PHENOBARBITAL (PHENOBARBITAL) [Concomitant]
  11. HYDROCODONE (HYDROOODONE) [Concomitant]
  12. MIRALAX (MACROGOL) [Concomitant]
  13. PYRIDOXINE (PYRIDOXINE)(15 MG, TABLET) [Concomitant]
  14. SENNA (SENNA ALEXANDRINA) [Concomitant]
  15. MYLICON (SIMETICONE) [Concomitant]
  16. MULTIVITAMIN (VIGRAN) [Concomitant]
  17. MIDAZOLAM (MIDAZOLAM)(INJECTION) [Concomitant]
  18. SYNTHROID (LEVOTHYROXINE SODIUM)(75 UG, TABLET [Concomitant]
  19. LEUCOVORIN (FOLINIC ACID)(25 MG, TABLET) [Concomitant]
  20. PREVACID (LANSOPRAZOLE) [Concomitant]
  21. ATROVENT (IPRATROPIUM BROMIDE) [Concomitant]
  22. MOTRIN (IBUPROFEN) [Concomitant]
  23. SOLU-CORTEF (HYDROCORTISONE SODIUM SUCCINATE) [Concomitant]

REACTIONS (28)
  - Infantile spasms [None]
  - Condition aggravated [None]
  - Convulsion [None]
  - Anoxia [None]
  - Ischaemia [None]
  - Respiratory failure [None]
  - Cardiac arrest [None]
  - Multi-organ failure [None]
  - Lactic acidosis [None]
  - Cerebral disorder [None]
  - Disseminated intravascular coagulation [None]
  - Renal failure [None]
  - Intestinal ischaemia [None]
  - Sepsis [None]
  - Hypotension [None]
  - Diabetes mellitus inadequate control [None]
  - Cardio-respiratory arrest [None]
  - Skin discolouration [None]
  - Mydriasis [None]
  - Somnolence [None]
  - Hypotonia [None]
  - Bradycardia [None]
  - Pulseless electrical activity [None]
  - Device leakage [None]
  - Brain injury [None]
  - Acute respiratory distress syndrome [None]
  - Cognitive disorder [None]
  - Unresponsive to stimuli [None]
